FAERS Safety Report 7271479-5 (Version None)
Quarter: 2011Q1

REPORT INFORMATION
  Report Type: 
  Country: None (occurrence: None)
  Receive Date: 20110125
  Receipt Date: 20110125
  Transmission Date: 20110831
  Serious: Yes (Hospitalization)
  Sender: FDA-Public Use
  Company Number: None

PATIENT
  Age: 79 Year
  Sex: Male
  Weight: 76.6579 kg

DRUGS (1)
  1. VANCOMYCIN [Suspect]
     Indication: GRAFT INFECTION
     Dosage: 1 GM EVERY 12 HOURS IV BOLUS
     Route: 040
     Dates: start: 20101221, end: 20110104

REACTIONS (1)
  - MEDICATION ERROR [None]
